FAERS Safety Report 7867372-7 (Version None)
Quarter: 2011Q4

REPORT INFORMATION
  Report Type: 
  Country: None (occurrence: None)
  Receive Date: 20111028
  Receipt Date: 20111026
  Transmission Date: 20120403
  Serious: No
  Sender: FDA-Public Use
  Company Number: US-TEVA-306949USA

PATIENT
  Sex: Female
  Weight: 66.284 kg

DRUGS (2)
  1. TYLENOL-500 [Concomitant]
     Indication: BACK PAIN
  2. PLAN B ONE-STEP [Suspect]
     Indication: POST COITAL CONTRACEPTION
     Dosage: 1.5 MILLIGRAM;
     Route: 048
     Dates: start: 20111024, end: 20111024

REACTIONS (4)
  - ABDOMINAL PAIN LOWER [None]
  - ABDOMINAL DISTENSION [None]
  - PELVIC PAIN [None]
  - PAIN IN EXTREMITY [None]
